FAERS Safety Report 4929227-7 (Version None)
Quarter: 2006Q1

REPORT INFORMATION
  Report Type: 
  Country: None (occurrence: None)
  Receive Date: 20060228
  Receipt Date: 20060228
  Transmission Date: 20060701
  Serious: Yes (Other)
  Sender: FDA-Public Use
  Company Number: None

PATIENT
  Sex: Male
  Weight: 109.87 kg

DRUGS (5)
  1. ZONEGRAN [Suspect]
     Indication: CONVULSION
     Dosage: 100 MG TWO TABS QHS #60
  2. DEPAKOTE ER [Concomitant]
  3. CLONAZEPAM [Concomitant]
  4. SYNTHROID [Concomitant]
  5. CYCLOBENZAPRINE HCL [Concomitant]

REACTIONS (7)
  - CHEST PAIN [None]
  - CHILLS [None]
  - CONDITION AGGRAVATED [None]
  - CONVULSION [None]
  - INFLUENZA [None]
  - PYREXIA [None]
  - UPPER RESPIRATORY TRACT INFECTION [None]
